FAERS Safety Report 9080868 (Version 1)
Quarter: 2013Q1

REPORT INFORMATION
  Report Type: Report from Study
  Country: US (occurrence: US)
  Receive Date: 20130130
  Receipt Date: 20130130
  Transmission Date: 20140127
  Serious: Yes (Hospitalization)
  Sender: FDA-Public Use
  Company Number: US-ABBOTT-12P-163-0971220-00

PATIENT
  Age: 87 Year
  Sex: Female

DRUGS (6)
  1. HUMIRA [Suspect]
     Indication: ARTHRALGIA
     Route: 058
     Dates: start: 20120524
  2. LIPITOR [Concomitant]
     Indication: PRODUCT USED FOR UNKNOWN INDICATION
  3. PLAVIX [Concomitant]
     Indication: PRODUCT USED FOR UNKNOWN INDICATION
  4. COREG [Concomitant]
     Indication: PRODUCT USED FOR UNKNOWN INDICATION
  5. ASA [Concomitant]
     Indication: PRODUCT USED FOR UNKNOWN INDICATION
  6. OXYCONTIN [Concomitant]
     Indication: PRODUCT USED FOR UNKNOWN INDICATION

REACTIONS (8)
  - Coronary artery occlusion [Unknown]
  - Constipation [Unknown]
  - Myocardial infarction [Unknown]
  - Cough [Unknown]
  - Spinal compression fracture [Unknown]
  - Rhinitis [Unknown]
  - Arthralgia [Unknown]
  - Back pain [Unknown]
